FAERS Safety Report 8458321-1 (Version None)
Quarter: 2012Q2

REPORT INFORMATION
  Report Type: 
  Country: None (occurrence: None)
  Receive Date: 20120622
  Receipt Date: 20120615
  Transmission Date: 20120825
  Serious: Yes (Other)
  Sender: FDA-Public Use
  Company Number: US-AMGEN-USASP2012032277

PATIENT
  Age: 79 Year
  Sex: Female
  Weight: 66.213 kg

DRUGS (5)
  1. COZAAR [Concomitant]
     Dosage: 50 MG, UNK
     Route: 048
  2. NPLATE [Suspect]
     Indication: IDIOPATHIC THROMBOCYTOPENIC PURPURA
     Dosage: 135 MUG, QWK
     Dates: start: 20110104
  3. COUMADIN [Concomitant]
     Dosage: 2 MG, TID
     Route: 048
  4. FUROSEMIDE [Concomitant]
     Dosage: 40 MG, UNK
     Route: 048
  5. POTASSIUM CHLORIDE [Concomitant]
     Dosage: 10 MEQ, UNK
     Route: 048

REACTIONS (10)
  - DYSPNOEA [None]
  - PLATELET COUNT DECREASED [None]
  - COUGH [None]
  - INFECTION [None]
  - RHINITIS ALLERGIC [None]
  - PLATELET COUNT INCREASED [None]
  - UPPER-AIRWAY COUGH SYNDROME [None]
  - PNEUMONIA [None]
  - LUNG DISORDER [None]
  - DEPRESSION [None]
